FAERS Safety Report 4693503-6 (Version None)
Quarter: 2005Q2

REPORT INFORMATION
  Report Type: 
  Country: None (occurrence: None)
  Receive Date: 20050617
  Receipt Date: 20050223
  Transmission Date: 20051028
  Serious: Yes (Other)
  Sender: FDA-Public Use
  Company Number: PHBS2005ES02706

PATIENT
  Age: 43 Year
  Sex: Female

DRUGS (3)
  1. TRILEPTAL [Suspect]
     Indication: BIPOLAR DISORDER
     Dosage: 1800 MG/D
     Route: 048
     Dates: start: 20040113, end: 20050216
  2. VENLAFAXINE HCL [Concomitant]
     Dosage: 225 MG/D
     Route: 048
  3. CHLORACEPHATE [Concomitant]
     Dosage: 15 MG/D
     Route: 048

REACTIONS (2)
  - ABORTION SPONTANEOUS [None]
  - DRUG EXPOSURE DURING PREGNANCY [None]
